FAERS Safety Report 24131698 (Version 1)
Quarter: 2024Q3

REPORT INFORMATION
  Report Type: Spontaneous
  Country: AE (occurrence: None)
  Receive Date: 20240723
  Receipt Date: 20240723
  Transmission Date: 20241017
  Serious: Yes (Life-Threatening, Hospitalization, Disabling, Other)
  Sender: Public
  Company Number: None

PATIENT
  Age: 35 Year
  Sex: Male
  Weight: 70 kg

DRUGS (16)
  1. INVEGA TRINZA [Suspect]
     Active Substance: PALIPERIDONE PALMITATE
     Indication: Schizophrenia
     Route: 030
  2. INVEGA TRINZA [Concomitant]
     Active Substance: PALIPERIDONE PALMITATE
  3. fybo gel [Concomitant]
  4. MOVICOL [Concomitant]
     Active Substance: POLYETHYLENE GLYCOL 3350\POTASSIUM CHLORIDE\SODIUM BICARBONATE\SODIUM CHLORIDE
  5. DUPHALAC [Concomitant]
     Active Substance: LACTULOSE
  6. PSYLLIUM HUSK [Concomitant]
     Active Substance: PSYLLIUM HUSK
  7. probiotics [Concomitant]
  8. ELECTROLYTES NOS [Concomitant]
     Active Substance: ELECTROLYTES NOS
  9. PEDIALYTE [Concomitant]
     Active Substance: POTASSIUM CITRATE\SODIUM CITRATE\ZINC
  10. CARBOHYDRATES\ELECTROLYTES NOS\VITAMINS [Concomitant]
     Active Substance: CARBOHYDRATES\ELECTROLYTES NOS\VITAMINS
  11. dulcolax [Concomitant]
  12. COCONUT OIL [Concomitant]
     Active Substance: COCONUT OIL
  13. SENNA [Concomitant]
     Active Substance: SENNA LEAF\SENNOSIDES\SENNOSIDES A AND B
  14. aloe vera gel [Concomitant]
  15. UNSPECIFIED INGREDIENT [Concomitant]
     Active Substance: UNSPECIFIED INGREDIENT
  16. EUCARBON [Concomitant]

REACTIONS (7)
  - Constipation [None]
  - Erectile dysfunction [None]
  - Sperm concentration zero [None]
  - Paralysis [None]
  - Blood pressure increased [None]
  - Hypersensitivity [None]
  - Dizziness [None]

NARRATIVE: CASE EVENT DATE: 20230901
